FAERS Safety Report 18579898 (Version 2)
Quarter: 2020Q4

REPORT INFORMATION
  Report Type: Report from Study
  Country: CA (occurrence: CA)
  Receive Date: 20201204
  Receipt Date: 20201231
  Transmission Date: 20210114
  Serious: Yes (Hospitalization)
  Sender: FDA-Public Use
  Company Number: CA-JNJFOC-20201149862

PATIENT
  Age: 39 Year
  Sex: Male
  Weight: 87.5 kg

DRUGS (2)
  1. STELARA [Suspect]
     Active Substance: USTEKINUMAB
     Indication: CROHN^S DISEASE
     Dosage: START DATE ALSO REPORTED AS 18-OCT-2017
     Route: 058
     Dates: start: 20171009
  2. STELARA [Suspect]
     Active Substance: USTEKINUMAB

REACTIONS (5)
  - Pneumonia [Recovering/Resolving]
  - Cytomegalovirus infection [Unknown]
  - Hepatic enzyme increased [Unknown]
  - Crohn^s disease [Unknown]
  - Infectious mononucleosis [Unknown]

NARRATIVE: CASE EVENT DATE: 202011
